FAERS Safety Report 5293960-0 (Version None)
Quarter: 2007Q2

REPORT INFORMATION
  Report Type: 
  Country: None (occurrence: None)
  Receive Date: 20070405
  Receipt Date: 20070326
  Transmission Date: 20071010
  Serious: Yes (Other)
  Sender: FDA-Public Use
  Company Number: SPV1-2007-01634

PATIENT
  Age: 6 Year
  Sex: Male
  Weight: 19.2 kg

DRUGS (4)
  1. DAYTRANA [Suspect]
     Indication: ATTENTION DEFICIT/HYPERACTIVITY DISORDER
     Dosage: 200MG, TRANSDERMAL
     Route: 062
     Dates: start: 20070101
  2. ZYRTEX /00884302/ (CETIRIZINE HYDROCHLORIDE) [Concomitant]
  3. SINGULAIR / 01362601/(MONTELUKAST) [Concomitant]
  4. PULMICORT RESPULES [Concomitant]

REACTIONS (3)
  - DECREASED APPETITE [None]
  - INSOMNIA [None]
  - PNEUMONIA [None]
